FAERS Safety Report 14963867 (Version 1)
Quarter: 2018Q2

REPORT INFORMATION
  Report Type: Report from Study
  Country: DE (occurrence: DE)
  Receive Date: 20180601
  Receipt Date: 20180601
  Transmission Date: 20180711
  Serious: Yes (Hospitalization)
  Sender: FDA-Public Use
  Company Number: DE-PFIZER INC-2018218307

PATIENT
  Sex: Female
  Weight: 74 kg

DRUGS (11)
  1. CARBOPLATIN. [Suspect]
     Active Substance: CARBOPLATIN
     Indication: BREAST CANCER
     Dosage: 258 MG, UNK
     Route: 042
     Dates: start: 20130507, end: 20130507
  2. CARBOPLATIN. [Suspect]
     Active Substance: CARBOPLATIN
     Indication: OVARIAN CANCER
     Dosage: 258 MG, EVERY 3 WEEKS
     Route: 042
     Dates: start: 20130416, end: 20130416
  3. PACLITAXEL. [Suspect]
     Active Substance: PACLITAXEL
     Indication: OVARIAN CANCER
     Dosage: 320 MG, EVERY 3 WEEKS
     Route: 042
     Dates: start: 20130507, end: 20130507
  4. MULTAQ [Concomitant]
     Active Substance: DRONEDARONE
     Indication: CARDIAC FAILURE
     Dosage: 800 MG, 1X/DAY
     Route: 048
  5. MACROGOL [Concomitant]
     Active Substance: POLYETHYLENE GLYCOLS
     Indication: CONSTIPATION
     Dosage: 4 G, UNK
     Route: 048
  6. CARBOPLATIN. [Suspect]
     Active Substance: CARBOPLATIN
     Dosage: 325 MG, UNK
     Route: 042
     Dates: start: 20130528, end: 20130528
  7. PACLITAXEL. [Suspect]
     Active Substance: PACLITAXEL
     Indication: BREAST CANCER
     Dosage: 320 MG, EVERY 3 WEEKS
     Route: 042
     Dates: start: 20130416, end: 20130528
  8. BEVACIZUMAB. [Suspect]
     Active Substance: BEVACIZUMAB
     Indication: BREAST CANCER
  9. BEVACIZUMAB. [Suspect]
     Active Substance: BEVACIZUMAB
     Indication: OVARIAN CANCER
     Dosage: 1100 MG, EVERY 3 WEEKS
     Route: 042
     Dates: start: 20130416, end: 20130528
  10. MACROGOL [Concomitant]
     Active Substance: POLYETHYLENE GLYCOLS
     Dosage: 1 DF, AS NEEDED
     Route: 048
  11. XARELTO [Concomitant]
     Active Substance: RIVAROXABAN
     Indication: CORONARY ARTERY DISEASE
     Dosage: 15 MG, UNK
     Route: 048

REACTIONS (8)
  - Pyrexia [Recovered/Resolved]
  - Fatigue [Recovered/Resolved]
  - General physical health deterioration [Recovered/Resolved]
  - Leukopenia [Recovered/Resolved]
  - Mucosal inflammation [Unknown]
  - Leukopenia [Unknown]
  - Vomiting [Unknown]
  - Pleural effusion [Unknown]

NARRATIVE: CASE EVENT DATE: 20130512
